FAERS Safety Report 25288270 (Version 2)
Quarter: 2025Q2

REPORT INFORMATION
  Report Type: Report from Study
  Country: US (occurrence: US)
  Receive Date: 20250509
  Receipt Date: 20250608
  Transmission Date: 20250716
  Serious: Yes (Death, Hospitalization, Other)
  Sender: ABBVIE
  Company Number: US-ABBVIE-6241761

PATIENT
  Age: 77 Year
  Sex: Male
  Weight: 75.296 kg

DRUGS (9)
  1. CREON [Suspect]
     Active Substance: PANCRELIPASE AMYLASE\PANCRELIPASE LIPASE\PANCRELIPASE PROTEASE
     Indication: Pancreatic failure
     Route: 048
     Dates: start: 202503
  2. LISINOPRIL [Concomitant]
     Active Substance: LISINOPRIL
     Indication: Hypertension
  3. LORAZEPAM [Concomitant]
     Active Substance: LORAZEPAM
     Indication: Arrhythmia
  4. SIMVASTATIN [Concomitant]
     Active Substance: SIMVASTATIN
     Indication: Blood cholesterol
  5. METOPROLOL [Concomitant]
     Active Substance: METOPROLOL
     Indication: Arrhythmia
  6. CITALOPRAM [Concomitant]
     Active Substance: CITALOPRAM
     Indication: Depression
  7. MINERALS\VITAMINS [Concomitant]
     Active Substance: MINERALS\VITAMINS
     Indication: Vitamin supplementation
  8. TYLENOL [Concomitant]
     Active Substance: ACETAMINOPHEN
     Indication: Pain
  9. ASPIRIN [Concomitant]
     Active Substance: ASPIRIN
     Indication: Anticoagulant therapy

REACTIONS (9)
  - Biliary tract infection [Fatal]
  - Abdominal pain upper [Unknown]
  - Diarrhoea [Unknown]
  - Perforation bile duct [Unknown]
  - Biliary tract infection [Fatal]
  - Urinary retention [Unknown]
  - Weight decreased [Unknown]
  - Nausea [Unknown]
  - Organ failure [Fatal]

NARRATIVE: CASE EVENT DATE: 20250101
